FAERS Safety Report 5628729-8 (Version None)
Quarter: 2008Q1

REPORT INFORMATION
  Report Type: 
  Country: None (occurrence: None)
  Receive Date: 20080215
  Receipt Date: 20080215
  Transmission Date: 20080703
  Serious: Yes (Other)
  Sender: FDA-Public Use
  Company Number: None

PATIENT
  Sex: Female
  Weight: 70.3075 kg

DRUGS (2)
  1. BOTOX [Suspect]
     Indication: MIGRAINE
     Dosage: 3 VIALS. 15 TO 20 IM
     Route: 030
     Dates: start: 20070906
  2. BOTOX [Suspect]
     Indication: MUSCLE SPASMS
     Dosage: 3 VIALS. 15 TO 20 IM
     Route: 030
     Dates: start: 20070906

REACTIONS (8)
  - DIZZINESS [None]
  - DRY MOUTH [None]
  - DYSPHAGIA [None]
  - MUSCULAR WEAKNESS [None]
  - NONSPECIFIC REACTION [None]
  - SYNCOPE [None]
  - TREMOR [None]
  - VISION BLURRED [None]
